FAERS Safety Report 4539504-X (Version None)
Quarter: 2004Q4

REPORT INFORMATION
  Report Type: 
  Country: None (occurrence: None)
  Receive Date: 20041227
  Receipt Date: 20041227
  Transmission Date: 20050328
  Serious: No
  Sender: FDA-Public Use
  Company Number: None

PATIENT
  Age: 45 Year
  Sex: Female
  Weight: 53.5244 kg

DRUGS (2)
  1. ERTAPENEM [Suspect]
     Indication: CHRONIC SINUSITIS
     Dosage: 1 GM IVPB DAILY
     Route: 042
     Dates: start: 20040915, end: 20041128
  2. ERTAPENEM [Suspect]
     Indication: STAPHYLOCOCCAL INFECTION
     Dosage: 1 GM IVPB DAILY
     Route: 042
     Dates: start: 20040915, end: 20041128

REACTIONS (3)
  - ABDOMINAL PAIN UPPER [None]
  - ABDOMINAL TENDERNESS [None]
  - HEPATIC ENZYME INCREASED [None]
